FAERS Safety Report 22597796 (Version 1)
Quarter: 2023Q2

REPORT INFORMATION
  Report Type: Spontaneous
  Country: US (occurrence: US)
  Receive Date: 20230614
  Receipt Date: 20230614
  Transmission Date: 20230721
  Serious: No
  Sender: FDA-Public Use
  Company Number: US-VIIV HEALTHCARE LIMITED-US2023078982

PATIENT
  Age: 45 Year
  Sex: Male

DRUGS (2)
  1. RILPIVIRINE [Suspect]
     Active Substance: RILPIVIRINE
     Indication: HIV infection
     Dosage: UNK UNK, Q2M FOR ABOUT 6 MONTHS
     Route: 065
     Dates: start: 20221201
  2. CABOTEGRAVIR [Suspect]
     Active Substance: CABOTEGRAVIR
     Indication: HIV infection
     Dosage: UNK UNK, Q2M FOR ABOUT 6 MONTHS
     Route: 065
     Dates: start: 20221201

REACTIONS (2)
  - Injection site abscess [Recovering/Resolving]
  - Nodule [Recovered/Resolved]

NARRATIVE: CASE EVENT DATE: 20230520
